FAERS Safety Report 5007033-5 (Version None)
Quarter: 2006Q2

REPORT INFORMATION
  Report Type: 
  Country: None (occurrence: None)
  Receive Date: 20060519
  Receipt Date: 20060428
  Transmission Date: 20061013
  Serious: Yes (Other)
  Sender: FDA-Public Use
  Company Number: JP-AVENTIS-200611395JP

PATIENT
  Age: 86 Year
  Sex: Male

DRUGS (2)
  1. ALLEGRA [Suspect]
     Route: 048
     Dates: start: 20060425, end: 20060428
  2. BUFFERIN [Concomitant]

REACTIONS (1)
  - ECZEMA [None]
